FAERS Safety Report 22817873 (Version 3)
Quarter: 2025Q4

REPORT INFORMATION
  Report Type: Report from Study
  Country: JP (occurrence: JP)
  Receive Date: 20230813
  Receipt Date: 20251013
  Transmission Date: 20260117
  Serious: Yes (Other)
  Sender: AMGEN
  Company Number: JP-Vifor (International) Inc.-VIT-2023-05982

PATIENT
  Age: 81 Year
  Sex: Male
  Weight: 46.9 kg

DRUGS (15)
  1. AVACOPAN [Suspect]
     Active Substance: AVACOPAN
     Indication: Microscopic polyangiitis
     Dosage: 30 MG, BID
     Route: 048
     Dates: start: 20221217, end: 20230309
  2. AVACOPAN [Suspect]
     Active Substance: AVACOPAN
     Dosage: 10 MG, BID
     Route: 048
     Dates: start: 20230310
  3. SULFAMETHOXAZOLE\TRIMETHOPRIM [Concomitant]
     Active Substance: SULFAMETHOXAZOLE\TRIMETHOPRIM
     Indication: Antifungal prophylaxis
     Dosage: 1920,MG,QW
     Route: 048
     Dates: start: 20221231
  4. PREDNISOLONE [Concomitant]
     Active Substance: PREDNISOLONE
     Indication: Microscopic polyangiitis
     Dosage: 10,MG,QD
     Route: 048
     Dates: start: 20221231, end: 20230223
  5. PREDNISOLONE [Concomitant]
     Active Substance: PREDNISOLONE
     Dosage: 7.5,MG,QD
     Route: 048
     Dates: start: 20230224, end: 20230406
  6. PREDNISOLONE [Concomitant]
     Active Substance: PREDNISOLONE
     Dosage: 5,MG,QD
     Route: 048
     Dates: start: 20230407, end: 20230511
  7. PREDNISOLONE [Concomitant]
     Active Substance: PREDNISOLONE
     Dosage: 3,MG,QD
     Route: 048
     Dates: start: 20230512, end: 20230606
  8. PREDNISOLONE [Concomitant]
     Active Substance: PREDNISOLONE
     Dosage: 2,MG,QD
     Route: 048
     Dates: start: 20230607, end: 20230907
  9. PREDNISOLONE [Concomitant]
     Active Substance: PREDNISOLONE
     Dosage: 1 MG, QD
     Route: 048
     Dates: start: 20230908
  10. RITUXIMAB [Concomitant]
     Active Substance: RITUXIMAB
     Indication: Microscopic polyangiitis
     Dosage: 550,MG,QD
     Route: 040
     Dates: start: 20221219, end: 20221219
  11. RITUXIMAB [Concomitant]
     Active Substance: RITUXIMAB
     Dosage: 550,MG,QD
     Route: 040
     Dates: start: 20221226, end: 20221226
  12. RITUXIMAB [Concomitant]
     Active Substance: RITUXIMAB
     Dosage: 550,MG,QD
     Route: 040
     Dates: start: 20230102, end: 20230102
  13. RITUXIMAB [Concomitant]
     Active Substance: RITUXIMAB
     Dosage: 550,MG,QD
     Route: 040
     Dates: start: 20230109, end: 20230109
  14. RITUXIMAB [Concomitant]
     Active Substance: RITUXIMAB
     Dosage: 550,MG,QD
     Route: 040
     Dates: start: 20230714, end: 20230714
  15. RITUXIMAB [Concomitant]
     Active Substance: RITUXIMAB
     Dosage: 550,MG,QD
     Route: 040
     Dates: start: 20240301, end: 20240301

REACTIONS (2)
  - Liver disorder [Recovered/Resolved]
  - Underdose [Unknown]

NARRATIVE: CASE EVENT DATE: 20230310
